FAERS Safety Report 5431455-1 (Version None)
Quarter: 2007Q3

REPORT INFORMATION
  Report Type: 
  Country: None (occurrence: None)
  Receive Date: 20070830
  Receipt Date: 20070706
  Transmission Date: 20080115
  Serious: No
  Sender: FDA-Public Use
  Company Number: A0660234A

PATIENT
  Age: 39 Year
  Sex: Female

DRUGS (3)
  1. WELLBUTRIN XL [Suspect]
     Indication: DEPRESSION
     Dosage: 900MG PER DAY
     Route: 048
  2. PROZAC [Concomitant]
  3. ADDERALL 10 [Concomitant]

REACTIONS (5)
  - ACCIDENTAL OVERDOSE [None]
  - DRUG DISPENSING ERROR [None]
  - HEART RATE INCREASED [None]
  - NAUSEA [None]
  - TREMOR [None]
